FAERS Safety Report 7856673 (Version 4)
Quarter: 2017Q3

REPORT INFORMATION
  Report Type: Spontaneous
  Country: GB (occurrence: GB)
  Receive Date: 20110315
  Receipt Date: 20170711
  Transmission Date: 20171128
  Serious: Yes (Other)
  Sender: FDA-Public Use
  Company Number: GB-TEVA-270784ISR

PATIENT
  Age: 61 Year
  Sex: Female

DRUGS (13)
  1. ASPIRIN. [Concomitant]
     Active Substance: ASPIRIN
     Dosage: 75 MILLIGRAM DAILY;
     Dates: start: 20101202
  2. TONIC FORM HERBALIST [Concomitant]
     Indication: MIGRAINE
  3. SIMVASTATIN. [Concomitant]
     Active Substance: SIMVASTATIN
     Dates: start: 20100913
  4. MEBEVERINE [Concomitant]
     Active Substance: MEBEVERINE
  5. RAMIPRIL. [Suspect]
     Active Substance: RAMIPRIL
     Route: 065
  6. CHAPARRAL DANDELION BLEND [Concomitant]
     Active Substance: HERBALS
  7. DILTIAZEM. [Suspect]
     Active Substance: DILTIAZEM
     Route: 048
     Dates: end: 20101104
  8. SOTALOL. [Concomitant]
     Active Substance: SOTALOL
  9. BISOPROLOL [Suspect]
     Active Substance: BISOPROLOL
     Route: 065
     Dates: start: 20101001, end: 20101006
  10. DILTIAZEM HYDROCHLORIDE (TILDIEM) [Suspect]
     Active Substance: DILTIAZEM HYDROCHLORIDE
     Dosage: 200 MILLIGRAM DAILY;
     Route: 048
     Dates: start: 20101006, end: 20101104
  11. BENDROFLUMETHIAZIDE [Concomitant]
     Active Substance: BENDROFLUMETHIAZIDE
  12. INDAPAMIDE. [Concomitant]
     Active Substance: INDAPAMIDE
     Dates: start: 20101001
  13. LOSARTAN. [Concomitant]
     Active Substance: LOSARTAN

REACTIONS (8)
  - Visual impairment [Unknown]
  - Hypoaesthesia [Recovered/Resolved]
  - Dizziness [Not Recovered/Not Resolved]
  - Drug hypersensitivity [Not Recovered/Not Resolved]
  - Blood pressure increased [Unknown]
  - Vision blurred [Not Recovered/Not Resolved]
  - Vertigo [Not Recovered/Not Resolved]
  - Nausea [Unknown]

NARRATIVE: CASE EVENT DATE: 20101110
